FAERS Safety Report 8462805-X (Version None)
Quarter: 2012Q2

REPORT INFORMATION
  Report Type: 
  Country: None (occurrence: None)
  Receive Date: 20120625
  Receipt Date: 20120618
  Transmission Date: 20120825
  Serious: Yes (Hospitalization, Other)
  Sender: FDA-Public Use
  Company Number: US-ROCHE-1005327

PATIENT
  Sex: Female
  Weight: 68.49 kg

DRUGS (3)
  1. PACLITAXEL [Suspect]
     Indication: FALLOPIAN TUBE CANCER
     Dosage: CYCLE: 1; OVER 3 HOURS ON DAY 1; TOTA DOSE ADMINISTERED: 243 MG; LAST DOSE PRIOR TO SAE:15 SEP 2011
     Route: 042
     Dates: start: 20110823
  2. CISPLATIN [Suspect]
     Indication: FALLOPIAN TUBE CANCER
     Dosage: CYCLE 1; ON DAY 2; TOTAL DOSE ADMINISTERED: 135 MG; LAST DOSE PRIOR TO SAE; 16 SEP 2011
     Route: 033
     Dates: start: 20110823
  3. AVASTIN [Suspect]
     Indication: FALLOPIAN TUBE CANCER
     Dosage: CYCLE 1; OVER 30-90 MIN ON DAY 1; TOTAL DOSE ADMINISTERED: 1064 MG; LAST DOSE PRIOR TO SAE: 26/JAN/2
     Route: 042
     Dates: start: 20110823

REACTIONS (5)
  - VOMITING [None]
  - GALLBLADDER OBSTRUCTION [None]
  - ABDOMINAL PAIN [None]
  - DIARRHOEA [None]
  - HYPERTENSION [None]
